FAERS Safety Report 5590898-6 (Version None)
Quarter: 2007Q4

REPORT INFORMATION
  Report Type: 
  Country: None (occurrence: None)
  Receive Date: 20071214
  Receipt Date: 20061101
  Transmission Date: 20080405
  Serious: Yes (Other)
  Sender: FDA-Public Use
  Company Number: PHEH2006US10610

PATIENT
  Age: 55 Year
  Sex: Female

DRUGS (2)
  1. SANDOSTATIN [Suspect]
     Dosage: 0.1 MG, TID, INJECTION NOS ; 0.1 MG, ONCE/SINGLE
     Dates: start: 20060804, end: 20060805
  2. SANDOSTATIN [Suspect]
     Dosage: 0.1 MG, TID, INJECTION NOS ; 0.1 MG, ONCE/SINGLE
     Dates: start: 20060806, end: 20060806

REACTIONS (5)
  - ARRHYTHMIA [None]
  - CARDIAC DISORDER [None]
  - HYPERSENSITIVITY [None]
  - PRURITUS [None]
  - RASH [None]
